FAERS Safety Report 12573216 (Version 1)
Quarter: 2016Q3

REPORT INFORMATION
  Report Type: Spontaneous
  Country: JP (occurrence: JP)
  Receive Date: 20160720
  Receipt Date: 20160720
  Transmission Date: 20161109
  Serious: Yes (Hospitalization)
  Sender: FDA-Public Use
  Company Number: JP-ASTRAZENECA-2016SE77562

PATIENT
  Age: 47 Year
  Sex: Female

DRUGS (8)
  1. PREDONINE [Concomitant]
     Active Substance: PREDNISOLONE\PREDNISOLONE ACETATE\PREDNISOLONE SODIUM SUCCINATE
     Dosage: 5.0MG UNKNOWN
     Route: 065
     Dates: start: 20160304, end: 20160304
  2. FOLIAMIN [Concomitant]
     Active Substance: FOLIC ACID
     Route: 065
  3. CELECOX [Concomitant]
     Active Substance: CELECOXIB
     Dosage: 200.0MG UNKNOWN
     Route: 065
     Dates: start: 20160304, end: 20160304
  4. RHEUMATREX [Concomitant]
     Active Substance: METHOTREXATE SODIUM
     Route: 065
  5. NEXIUM [Suspect]
     Active Substance: ESOMEPRAZOLE MAGNESIUM
     Route: 048
  6. AZULFIDINE EN-TABS [Concomitant]
     Active Substance: SULFASALAZINE
     Dosage: 1000.0MG UNKNOWN
     Route: 065
     Dates: start: 20160304, end: 20160304
  7. CIMZIA [Concomitant]
     Active Substance: CERTOLIZUMAB PEGOL
     Dosage: 400.0MG UNKNOWN
     Route: 058
     Dates: start: 20160304, end: 20160304
  8. FERROMIA [Concomitant]
     Active Substance: FERROUS CITRATE
     Dosage: 100.0MG UNKNOWN
     Route: 065
     Dates: start: 20160304, end: 20160304

REACTIONS (4)
  - Pyelonephritis [Recovered/Resolved]
  - Influenza [Recovered/Resolved]
  - Sepsis [Recovered/Resolved]
  - Escherichia test positive [Recovered/Resolved]

NARRATIVE: CASE EVENT DATE: 201603
